FAERS Safety Report 4685271-9 (Version None)
Quarter: 2005Q2

REPORT INFORMATION
  Report Type: 
  Country: None (occurrence: None)
  Receive Date: 20050608
  Receipt Date: 20050603
  Transmission Date: 20051028
  Serious: Yes (Death)
  Sender: FDA-Public Use
  Company Number: US-JNJFOC-20050407321

PATIENT
  Sex: Female

DRUGS (2)
  1. DURAGESIC-100 [Suspect]
     Route: 062
     Dates: start: 20050401
  2. HYDROCODONE BITARTRATE [Concomitant]
     Dosage: 1.0/1.5 MG
     Route: 049
     Dates: start: 20050101

REACTIONS (6)
  - ANXIETY [None]
  - DEATH [None]
  - HEART RATE DECREASED [None]
  - HYPERHIDROSIS [None]
  - INTENTIONAL MISUSE [None]
  - NERVOUSNESS [None]
